FAERS Safety Report 25807033 (Version 1)
Quarter: 2025Q3

REPORT INFORMATION
  Report Type: Report from Study
  Country: GB (occurrence: GB)
  Receive Date: 20250916
  Receipt Date: 20250916
  Transmission Date: 20251020
  Serious: Yes (Hospitalization)
  Sender: ASTELLAS
  Company Number: GB-ASTELLAS-2025-AER-023163

PATIENT
  Age: 74 Year
  Sex: Male

DRUGS (3)
  1. ENZALUTAMIDE [Suspect]
     Active Substance: ENZALUTAMIDE
     Indication: Prostate cancer
     Route: 048
     Dates: start: 20250411, end: 20250529
  2. ENZALUTAMIDE [Suspect]
     Active Substance: ENZALUTAMIDE
     Route: 048
     Dates: start: 20250612, end: 2025
  3. ENZALUTAMIDE [Suspect]
     Active Substance: ENZALUTAMIDE
     Route: 048
     Dates: start: 20250708, end: 20250911

REACTIONS (7)
  - Cardiac failure [Not Recovered/Not Resolved]
  - Restless legs syndrome [Recovering/Resolving]
  - Back pain [Recovered/Resolved]
  - Hypertension [Not Recovered/Not Resolved]
  - Joint swelling [Unknown]
  - Fatigue [Recovering/Resolving]
  - Urinary tract infection [Recovered/Resolved]

NARRATIVE: CASE EVENT DATE: 20250422
